FAERS Safety Report 4264502-3 (Version None)
Quarter: 2004Q1

REPORT INFORMATION
  Report Type: 
  Country: None (occurrence: None)
  Receive Date: 20040102
  Receipt Date: 20031223
  Transmission Date: 20041129
  Serious: Yes (Other)
  Sender: FDA-Public Use
  Company Number: US-JNJFOC-20031204954

PATIENT
  Age: 43 Year
  Sex: Female
  Weight: 76.2043 kg

DRUGS (2)
  1. REMICADE [Suspect]
     Indication: CROHN'S DISEASE
     Dosage: 400 MG, INTRAVENOUS
     Route: 042
     Dates: start: 20031028
  2. MERCAPTOPURINE [Concomitant]

REACTIONS (1)
  - MALIGNANT MELANOMA STAGE I [None]
